FAERS Safety Report 12526179 (Version 1)
Quarter: 2016Q3

REPORT INFORMATION
  Report Type: Spontaneous
  Country: US (occurrence: None)
  Receive Date: 20160701
  Receipt Date: 20160701
  Transmission Date: 20161109
  Serious: Yes (Hospitalization, Other)
  Sender: FDA-Public Use
  Company Number: None

PATIENT
  Age: 24 Year
  Sex: Female
  Weight: 57.61 kg

DRUGS (3)
  1. MULTI-VITAMINS [Concomitant]
  2. BIOTIN [Concomitant]
     Active Substance: BIOTIN
  3. NEXPLANON [Suspect]
     Active Substance: ETONOGESTREL

REACTIONS (2)
  - Procedural complication [None]
  - Device use error [None]

NARRATIVE: CASE EVENT DATE: 20160629
